FAERS Safety Report 18023622 (Version 1)
Quarter: 2020Q3

REPORT INFORMATION
  Report Type: Report from Study
  Country: CA (occurrence: CA)
  Receive Date: 20200714
  Receipt Date: 20200714
  Transmission Date: 20201103
  Serious: Yes (Death)
  Sender: FDA-Public Use
  Company Number: CA-ACTELION-A-NJ2019-187117

PATIENT
  Age: 71 Year
  Sex: Male

DRUGS (14)
  1. REVATIO [Concomitant]
     Active Substance: SILDENAFIL CITRATE
  2. ATORVASTATIN [Concomitant]
     Active Substance: ATORVASTATIN
  3. VITAMIN D3 [Concomitant]
     Active Substance: CHOLECALCIFEROL
  4. AMITRIPTYLINE [Concomitant]
     Active Substance: AMITRIPTYLINE
  5. UPTRAVI [Suspect]
     Active Substance: SELEXIPAG
     Dosage: 400 MCG
     Route: 048
     Dates: start: 20180619
  6. UPTRAVI [Suspect]
     Active Substance: SELEXIPAG
     Indication: PULMONARY ARTERIAL HYPERTENSION
     Dosage: 800 MCG, BID
     Route: 048
  7. EZETROL [Concomitant]
     Active Substance: EZETIMIBE
  8. MONOCOR [Concomitant]
     Active Substance: BISOPROLOL FUMARATE
  9. UPTRAVI [Suspect]
     Active Substance: SELEXIPAG
     Dosage: 600 MCG, BID
     Route: 048
     Dates: start: 20190207
  10. TRACLEER [Suspect]
     Active Substance: BOSENTAN
     Indication: PULMONARY ARTERIAL HYPERTENSION
     Dosage: 125 MG, BID
     Route: 048
     Dates: start: 20180619
  11. MOMETASONE [Concomitant]
     Active Substance: MOMETASONE
  12. LASIX [Concomitant]
     Active Substance: FUROSEMIDE
  13. COLD FX [Concomitant]
     Active Substance: PANAX GINSENG WHOLE
  14. POTASSIUM [Concomitant]
     Active Substance: POTASSIUM

REACTIONS (4)
  - Headache [Recovered/Resolved]
  - Death [Fatal]
  - Pain [Recovered/Resolved]
  - Back pain [Recovered/Resolved]

NARRATIVE: CASE EVENT DATE: 20190220
